FAERS Safety Report 18169056 (Version 1)
Quarter: 2020Q3

REPORT INFORMATION
  Report Type: Spontaneous
  Country: US (occurrence: US)
  Receive Date: 20200819
  Receipt Date: 20200819
  Transmission Date: 20201103
  Serious: Yes (Other)
  Sender: FDA-Public Use
  Company Number: None

PATIENT
  Age: 57 Year
  Sex: Male
  Weight: 105 kg

DRUGS (1)
  1. CIPROFLOXACIN. [Suspect]
     Active Substance: CIPROFLOXACIN
     Dosage: ?          OTHER FREQUENCY:ONE;?
     Route: 041
     Dates: start: 20200818, end: 20200818

REACTIONS (1)
  - Rash [None]

NARRATIVE: CASE EVENT DATE: 20200818
